FAERS Safety Report 14777758 (Version 1)
Quarter: 2018Q2

REPORT INFORMATION
  Report Type: Spontaneous
  Country: US (occurrence: US)
  Receive Date: 20180419
  Receipt Date: 20180419
  Transmission Date: 20180711
  Serious: No
  Sender: FDA-Public Use
  Company Number: US-AMGEN-USASP2018051660

PATIENT
  Age: 45 Year
  Sex: Female

DRUGS (15)
  1. LISINOPRIL. [Concomitant]
     Active Substance: LISINOPRIL
     Dosage: UNK
  2. IBUPROFEN. [Concomitant]
     Active Substance: IBUPROFEN
     Dosage: UNK
  3. ENBREL [Suspect]
     Active Substance: ETANERCEPT
     Indication: RHEUMATOID ARTHRITIS
     Dosage: 50 MG, QWK
     Route: 058
     Dates: start: 20150906
  4. DOXYCYCLINE HYCLATE. [Concomitant]
     Active Substance: DOXYCYCLINE HYCLATE
     Dosage: UNK
  5. PEPCID [Concomitant]
     Active Substance: FAMOTIDINE
     Dosage: UNK
  6. BUPROPION. [Concomitant]
     Active Substance: BUPROPION
     Dosage: 150 MG, UNK
  7. METFORMIN [Concomitant]
     Active Substance: METFORMIN HYDROCHLORIDE
     Dosage: 500 MG, UNK
  8. ATENOLOL. [Concomitant]
     Active Substance: ATENOLOL
     Dosage: UNK
  9. PREDNISONE. [Concomitant]
     Active Substance: PREDNISONE
     Dosage: UNK
  10. PLAQUENIL [Concomitant]
     Active Substance: HYDROXYCHLOROQUINE SULFATE
     Dosage: UNK
  11. CEPHALEXIN. [Concomitant]
     Active Substance: CEPHALEXIN
     Dosage: 250 MG, UNK
  12. METHOCARBAMOL. [Concomitant]
     Active Substance: METHOCARBAMOL
     Dosage: UNK
  13. LEFLUNOMIDE. [Concomitant]
     Active Substance: LEFLUNOMIDE
     Dosage: UNK
  14. TRAMADOL HCL [Concomitant]
     Active Substance: TRAMADOL HYDROCHLORIDE
     Dosage: UNK
  15. GABAPENTIN. [Concomitant]
     Active Substance: GABAPENTIN
     Dosage: UNK

REACTIONS (1)
  - Sinus disorder [Recovered/Resolved]
